FAERS Safety Report 8553025-9 (Version None)
Quarter: 2012Q3

REPORT INFORMATION
  Report Type: 
  Country: None (occurrence: None)
  Receive Date: 20120724
  Receipt Date: 20120724
  Transmission Date: 20120928
  Serious: Yes (Disabling, Other)
  Sender: FDA-Public Use
  Company Number: None

PATIENT
  Sex: Female

DRUGS (2)
  1. SEROQUEL [Suspect]
     Indication: BIPOLAR DISORDER
     Dosage: 50 MG P.O. BID, BY MOUTH
     Route: 048
     Dates: start: 20090706, end: 20090715
  2. RISPERDAL [Suspect]
     Indication: BIPOLAR DISORDER
     Dosage: 2 MG P.O. BID BY MOUTH
     Route: 048

REACTIONS (7)
  - INCORRECT DRUG ADMINISTRATION DURATION [None]
  - SOMNOLENCE [None]
  - AMENORRHOEA [None]
  - ELECTROLYTE IMBALANCE [None]
  - LETHARGY [None]
  - IMPAIRED WORK ABILITY [None]
  - FATIGUE [None]
